FAERS Safety Report 8397428-4 (Version None)
Quarter: 2012Q1

REPORT INFORMATION
  Report Type: 
  Country: None (occurrence: None)
  Receive Date: 20120323
  Receipt Date: 20110412
  Transmission Date: 20120608
  Serious: Yes (Hospitalization)
  Sender: FDA-Public Use
  Company Number: 163-21880-11031727

PATIENT
  Age: 63 Year
  Sex: Female
  Weight: 67.586 kg

DRUGS (32)
  1. XANAX [Concomitant]
  2. ONDANSETRON [Concomitant]
  3. VITAMIN E [Concomitant]
  4. MULTIVITAMIN [Concomitant]
  5. REVLIMID [Suspect]
     Indication: CHRONIC LEUKAEMIA
     Dosage: 5 MG, DAILY X 28 DAYS, PO,
     Route: 048
     Dates: start: 20110124, end: 20110216
  6. REVLIMID [Suspect]
     Indication: CHRONIC LEUKAEMIA
     Dosage: 5 MG, DAILY X 28 DAYS, PO,
     Route: 048
     Dates: start: 20110324
  7. REVLIMID [Suspect]
     Indication: CHRONIC LEUKAEMIA
     Dosage: 5 MG, DAILY X 28 DAYS, PO,
     Route: 048
     Dates: start: 20110225, end: 20110308
  8. PRILOSEC [Concomitant]
  9. FISH OIL (FISH OIL) [Concomitant]
  10. VITAMIN D [Concomitant]
  11. CALCIUM CARBONATE [Concomitant]
  12. VITAMIN B6 [Concomitant]
  13. BENADRYL [Concomitant]
  14. ASACOL [Concomitant]
  15. OXYCODONE HCL [Concomitant]
  16. DOXEPIN HCL [Concomitant]
  17. ESTRADIOL [Concomitant]
  18. RESTORIL [Concomitant]
  19. FOLIC ACID [Concomitant]
  20. SELLENIUM (SELENIUM) [Concomitant]
  21. LOVAZA [Concomitant]
  22. IMMUNE GLOBULIN INTRAVENOUS (HUMAN) [Concomitant]
  23. TYLENOL/CODEINE#3 (PANADEINE CO) [Concomitant]
  24. DIAZEPAM [Concomitant]
  25. VITAMIN B1 TAB [Concomitant]
  26. LORTAB [Concomitant]
  27. ROBITUSSIN (ALL OTHER THERAPEUTIC PRODUCTS) [Concomitant]
  28. PROMETRIUM [Concomitant]
  29. DOCUSATE (DOCUSATE) [Concomitant]
  30. ASCORBIC ACID [Concomitant]
  31. GAMMAGARD [Concomitant]
  32. ASPIRIN [Concomitant]

REACTIONS (6)
  - INFLUENZA [None]
  - CONSTIPATION [None]
  - NAUSEA [None]
  - HAEMOGLOBIN ABNORMAL [None]
  - RED BLOOD CELL ABNORMALITY [None]
  - DIARRHOEA [None]
